FAERS Safety Report 6288166-2 (Version None)
Quarter: 2009Q3

REPORT INFORMATION
  Report Type: 
  Country: None (occurrence: None)
  Receive Date: 20090729
  Receipt Date: 20090721
  Transmission Date: 20100115
  Serious: Yes (Hospitalization, Disabling)
  Sender: FDA-Public Use
  Company Number: JP-ASTRAZENECA-2009SE05097

PATIENT
  Age: 79 Year
  Sex: Male

DRUGS (5)
  1. IRESSA [Suspect]
     Indication: LUNG NEOPLASM MALIGNANT
     Route: 048
     Dates: start: 20090626, end: 20090714
  2. PAXIL [Suspect]
     Route: 048
     Dates: end: 20090717
  3. PREDNISOLONE [Concomitant]
     Route: 065
  4. GASTER [Concomitant]
     Route: 065
  5. VESICARE [Concomitant]
     Route: 065

REACTIONS (5)
  - CYSTITIS HAEMORRHAGIC [None]
  - DISSEMINATED INTRAVASCULAR COAGULATION [None]
  - HAEMATURIA [None]
  - PYELONEPHRITIS [None]
  - SEPSIS [None]
